FAERS Safety Report 8270580-7 (Version None)
Quarter: 2012Q2

REPORT INFORMATION
  Report Type: 
  Country: None (occurrence: None)
  Receive Date: 20120410
  Receipt Date: 20120330
  Transmission Date: 20120825
  Serious: Yes (Hospitalization)
  Sender: FDA-Public Use
  Company Number: US-BRISTOL-MYERS SQUIBB COMPANY-16491607

PATIENT
  Age: 63 Year
  Sex: Male
  Weight: 149 kg

DRUGS (3)
  1. CISPLATIN [Suspect]
     Indication: OESOPHAGEAL ADENOCARCINOMA
     Dosage: COURSE 5, RECENT DOSE 20MAR12
     Dates: start: 20120227
  2. ERBITUX [Suspect]
     Indication: OESOPHAGEAL ADENOCARCINOMA
     Dosage: COURSE 5, RECENT DOSE 20MAR12
     Dates: start: 20120227
  3. TAXOL [Suspect]
     Indication: OESOPHAGEAL ADENOCARCINOMA
     Dosage: COURSE 5, RECENT DOSE 20MAR2012
     Dates: start: 20120227

REACTIONS (4)
  - NAUSEA [None]
  - DEHYDRATION [None]
  - DIARRHOEA [None]
  - HYPOTENSION [None]
